FAERS Safety Report 4957281-5 (Version None)
Quarter: 2006Q1

REPORT INFORMATION
  Report Type: 
  Country: None (occurrence: None)
  Receive Date: 20060323
  Receipt Date: 20060307
  Transmission Date: 20060701
  Serious: Yes (Other)
  Sender: FDA-Public Use
  Company Number: US_0508120871

PATIENT
  Age: 42 Year
  Sex: Male
  Weight: 117.9 kg

DRUGS (17)
  1. OLANZAPINE [Suspect]
     Indication: SCHIZOPHRENIA
     Dosage: 20 MG; SEE IMAGE
     Dates: start: 19980801, end: 20000401
  2. OLANZAPINE [Suspect]
     Indication: SCHIZOPHRENIA
     Dosage: 20 MG; SEE IMAGE
     Dates: start: 20010501, end: 20010627
  3. OLANZAPINE [Suspect]
     Indication: SCHIZOPHRENIA
     Dosage: 20 MG; SEE IMAGE
     Dates: start: 19980626, end: 20041119
  4. OLANZAPINE [Suspect]
     Indication: SCHIZOPHRENIA
     Dosage: 20 MG; SEE IMAGE
     Dates: start: 20010701, end: 20050501
  5. OLANZAPINE [Suspect]
     Indication: SCHIZOPHRENIA
     Dosage: 20 MG; SEE IMAGE
     Dates: start: 20010701, end: 20050501
  6. RISPERDAL /SWE/ (RISPERIDONE) [Concomitant]
  7. PAXIL [Concomitant]
  8. NEURONTIN [Concomitant]
  9. COLACE (DOCUSATE SODIUM) [Concomitant]
  10. SEROQUEL [Concomitant]
  11. TRAZODONE HCL [Concomitant]
  12. PROLIXIN [Concomitant]
  13. THORAZINE [Concomitant]
  14. EFFEXOR [Concomitant]
  15. ATIVAN [Concomitant]
  16. ADVAIR DISKUS (FLUTICASONE PROPIONATE, SALMETEROL XINAFOATE) [Concomitant]
  17. BUPROPION HCL [Concomitant]

REACTIONS (11)
  - BREAST MASS [None]
  - DIABETES MELLITUS [None]
  - GLYCOSYLATED HAEMOGLOBIN INCREASED [None]
  - HAEMATOCHEZIA [None]
  - HEPATIC STEATOSIS [None]
  - HEPATOMEGALY [None]
  - HYPERCHOLESTEROLAEMIA [None]
  - LOW DENSITY LIPOPROTEIN INCREASED [None]
  - OVERWEIGHT [None]
  - PRESCRIBED OVERDOSE [None]
  - RECTAL HAEMORRHAGE [None]
